FAERS Safety Report 23924226 (Version 1)
Quarter: 2024Q2

REPORT INFORMATION
  Report Type: Spontaneous
  Country: US (occurrence: None)
  Receive Date: 20240530
  Receipt Date: 20240530
  Transmission Date: 20240716
  Serious: Yes (Other)
  Sender: FDA-Public Use
  Company Number: None

PATIENT
  Age: 83 Year
  Sex: Female
  Weight: 75.3 kg

DRUGS (1)
  1. GILOTRIF [Suspect]
     Active Substance: AFATINIB
     Indication: Non-small cell lung cancer
     Dosage: 20 MG DAILY ORAL
     Route: 048
     Dates: start: 20231208, end: 20240515

REACTIONS (1)
  - Tinnitus [None]

NARRATIVE: CASE EVENT DATE: 20240530
